FAERS Safety Report 6763733-8 (Version None)
Quarter: 2010Q2

REPORT INFORMATION
  Report Type: 
  Country: None (occurrence: None)
  Receive Date: 20100610
  Receipt Date: 20100528
  Transmission Date: 20101027
  Serious: Yes (Hospitalization, Other)
  Sender: FDA-Public Use
  Company Number: PHHY2009DE09332

PATIENT
  Age: 70 Year
  Sex: Male
  Weight: 90 kg

DRUGS (10)
  1. RASILEZ [Suspect]
     Indication: HYPERTENSION
     Dosage: 300 MG 1 IN 1 DAY
     Route: 048
     Dates: start: 20080601
  2. ACTRAPID HUMAN [Concomitant]
     Indication: TYPE 2 DIABETES MELLITUS
     Dosage: UNK
     Route: 058
     Dates: start: 20031101
  3. ALLOPURINOL [Concomitant]
     Indication: HYPERURICAEMIA
     Dosage: 150 MG 1 IN 1 DAY
     Route: 048
  4. AMLODIPINE [Concomitant]
     Indication: HYPERTENSION
     Dosage: 10 MG 1 IN 1 DAY
     Route: 048
     Dates: start: 20081101, end: 20081216
  5. METOPROLOL SUCCINATE [Concomitant]
     Indication: HYPERTENSION
     Dosage: 1 DF, BID
     Route: 048
     Dates: end: 20081217
  6. EXFORGE [Concomitant]
     Indication: HYPERTENSION
     Dosage: 10 MG 1 IN 1 DAY
     Route: 048
     Dates: start: 20081001
  7. FALITHROM [Concomitant]
     Indication: ATRIAL FIBRILLATION
     Dosage: UNK
  8. HYDROCHLOROTHIAZIDE [Concomitant]
     Indication: OEDEMA
     Dosage: 25 MG 1 IN 1 DAY
     Route: 048
     Dates: end: 20081216
  9. PROTAPHAN [Concomitant]
     Indication: TYPE 2 DIABETES MELLITUS
     Dosage: 20 IU 1 IN 1 DAY
     Route: 058
     Dates: start: 20031101
  10. SIMVA [Concomitant]
     Indication: HYPERCHOLESTEROLAEMIA
     Dosage: 20 MG 1 IN 1 DAY
     Route: 048

REACTIONS (12)
  - ACTIVATED PARTIAL THROMBOPLASTIN TIME PROLONGED [None]
  - BLOOD CREATININE INCREASED [None]
  - BLOOD FIBRINOGEN INCREASED [None]
  - BLOOD UREA INCREASED [None]
  - COUGH [None]
  - DILATATION VENTRICULAR [None]
  - DYSPNOEA [None]
  - HYPOTENSION [None]
  - INTERNATIONAL NORMALISED RATIO INCREASED [None]
  - PULMONARY CONGESTION [None]
  - PULMONARY OEDEMA [None]
  - WHITE BLOOD CELL COUNT INCREASED [None]
